FAERS Safety Report 15892028 (Version 1)
Quarter: 2019Q1

REPORT INFORMATION
  Report Type: Spontaneous
  Country: DE (occurrence: DE)
  Receive Date: 20190130
  Receipt Date: 20190130
  Transmission Date: 20190417
  Serious: No
  Sender: FDA-Public Use
  Company Number: DE-IPSEN-CABO-18012761

PATIENT
  Age: 51 Year
  Sex: Female

DRUGS (2)
  1. COMETRIQ [Suspect]
     Active Substance: CABOZANTINIB S-MALATE
     Dosage: 80 MG, UNK
  2. COMETRIQ [Suspect]
     Active Substance: CABOZANTINIB S-MALATE
     Indication: ADRENOCORTICAL CARCINOMA
     Dosage: 60 MG, UNK
     Dates: start: 20160218

REACTIONS (9)
  - Paronychia [Unknown]
  - Hypertension [Unknown]
  - Hair colour changes [Unknown]
  - Fatigue [Unknown]
  - Off label use [Unknown]
  - Rash [Unknown]
  - Nausea [Unknown]
  - Mucosal inflammation [Unknown]
  - Proteinuria [Unknown]
